FAERS Safety Report 11119110 (Version 1)
Quarter: 2015Q2

REPORT INFORMATION
  Report Type: Spontaneous
  Country: US (occurrence: None)
  Receive Date: 20150515
  Receipt Date: 20150515
  Transmission Date: 20150821
  Serious: Yes (Other)
  Sender: FDA-Public Use
  Company Number: None

PATIENT
  Age: 51 Year
  Sex: Female

DRUGS (1)
  1. STELARA [Suspect]
     Active Substance: USTEKINUMAB
     Dosage: Q 12 WEEKS
     Route: 058
     Dates: start: 20140917

REACTIONS (8)
  - Urinary tract infection [None]
  - Cluster headache [None]
  - Rash erythematous [None]
  - Bronchitis [None]
  - Sinusitis [None]
  - Ear infection [None]
  - Vision blurred [None]
  - Rash generalised [None]

NARRATIVE: CASE EVENT DATE: 20150513
